FAERS Safety Report 4402136-8 (Version None)
Quarter: 2004Q3

REPORT INFORMATION
  Report Type: 
  Country: None (occurrence: None)
  Receive Date: 20040716
  Receipt Date: 20010727
  Transmission Date: 20050211
  Serious: Yes (Hospitalization)
  Sender: FDA-Public Use
  Company Number: 02100-JPN-01-0057

PATIENT
  Age: 61 Year
  Sex: Male

DRUGS (8)
  1. CILOSTAZOL [Suspect]
     Indication: INTERMITTENT CLAUDICATION
     Dosage: 300 MG ORAL
     Route: 048
     Dates: start: 20010424, end: 20010613
  2. CANDESARTAN CILEXETIL [Concomitant]
  3. MANIDIPINE HYDROCHLORIDE [Concomitant]
  4. WARFARIN POTASSIUM [Concomitant]
  5. SARPOGRELATE HYDROCHLORIDE [Concomitant]
  6. REBAMIPIDE [Concomitant]
  7. BROTIZOLAM [Concomitant]
  8. LACTOMIN [Concomitant]

REACTIONS (5)
  - ALANINE AMINOTRANSFERASE INCREASED [None]
  - BLOOD ALBUMIN INCREASED [None]
  - BLOOD CREATININE INCREASED [None]
  - BLOOD UREA INCREASED [None]
  - RENAL IMPAIRMENT [None]
